FAERS Safety Report 15727897 (Version 2)
Quarter: 2019Q1

REPORT INFORMATION
  Report Type: Spontaneous
  Country: US (occurrence: US)
  Receive Date: 20181217
  Receipt Date: 20190308
  Transmission Date: 20190417
  Serious: No
  Sender: FDA-Public Use
  Company Number: US-CELGENEUS-USA-20181201276

PATIENT
  Age: 36 Year
  Sex: Male

DRUGS (1)
  1. OTEZLA [Suspect]
     Active Substance: APREMILAST
     Indication: PSORIASIS
     Dosage: 60 MILLIGRAM
     Route: 048
     Dates: start: 201811

REACTIONS (5)
  - Product dose omission [Unknown]
  - Therapy non-responder [Unknown]
  - Vomiting [Unknown]
  - Nausea [Unknown]
  - Viral infection [Unknown]

NARRATIVE: CASE EVENT DATE: 201812
